FAERS Safety Report 10015666 (Version 4)
Quarter: 2019Q2

REPORT INFORMATION
  Report Type: Spontaneous
  Country: US (occurrence: US)
  Receive Date: 20140317
  Receipt Date: 20190424
  Transmission Date: 20190711
  Serious: No
  Sender: FDA-Public Use
  Company Number: US-PFIZER INC-2014074499

PATIENT
  Age: 66 Year
  Sex: Female
  Weight: 79 kg

DRUGS (4)
  1. ATORVASTATIN CALCIUM. [Suspect]
     Active Substance: ATORVASTATIN CALCIUM
     Indication: BLOOD CHOLESTEROL INCREASED
     Dosage: 40 MG, 1X/DAY
  2. ATENOLOL. [Concomitant]
     Active Substance: ATENOLOL
     Indication: BLOOD PRESSURE ABNORMAL
     Dosage: 50 MG, 1X/DAY
  3. ATORVASTATIN CALCIUM. [Suspect]
     Active Substance: ATORVASTATIN CALCIUM
     Dosage: 40 MG, 1X/DAY (FOR ABOUT 10 DAYS OR TWO WEEKS)
     Route: 048
     Dates: start: 2013
  4. ATORVASTATIN CALCIUM. [Suspect]
     Active Substance: ATORVASTATIN CALCIUM
     Dosage: 50 MG, DAILY [TAKE ONE OF 40MG IN THE MORNING AND ONE OF 10MG IN THE EVENING]
     Dates: start: 20130601, end: 20130701

REACTIONS (6)
  - Low density lipoprotein increased [Unknown]
  - Myalgia [Recovering/Resolving]
  - Pain in extremity [Unknown]
  - Fatigue [Unknown]
  - Malaise [Unknown]
  - Muscle spasms [Unknown]
